FAERS Safety Report 18043873 (Version 1)
Quarter: 2020Q3

REPORT INFORMATION
  Report Type: Spontaneous
  Country: US (occurrence: US)
  Receive Date: 20200718
  Receipt Date: 20200718
  Transmission Date: 20201103
  Serious: Yes (Other)
  Sender: FDA-Public Use
  Company Number: None

PATIENT
  Age: 42 Year
  Sex: Female
  Weight: 129.6 kg

DRUGS (7)
  1. KLONOZOPAM [Concomitant]
  2. VITAMIN D3 [Concomitant]
     Active Substance: CHOLECALCIFEROL
  3. XARELTO [Concomitant]
     Active Substance: RIVAROXABAN
  4. WOMEN^S MULTIVITAMIN [Concomitant]
  5. METFORMIN [Concomitant]
     Active Substance: METFORMIN HYDROCHLORIDE
  6. XARELTO [Suspect]
     Active Substance: RIVAROXABAN
     Indication: ANTICOAGULANT THERAPY
     Dosage: ?          QUANTITY:30 TABLET(S);?
     Route: 048
     Dates: start: 20200419, end: 20200716
  7. VITAMIN C [Concomitant]
     Active Substance: ASCORBIC ACID

REACTIONS (16)
  - Sinus pain [None]
  - Stomatitis [None]
  - Myalgia [None]
  - Weight decreased [None]
  - Panic attack [None]
  - Anxiety [None]
  - Depression [None]
  - Oropharyngeal pain [None]
  - Hypoaesthesia [None]
  - Hyperaesthesia teeth [None]
  - Memory impairment [None]
  - Alopecia [None]
  - Bruxism [None]
  - Muscle spasms [None]
  - Fluid retention [None]
  - Palpitations [None]

NARRATIVE: CASE EVENT DATE: 20200421
